FAERS Safety Report 10158576 (Version 3)
Quarter: 2014Q2

REPORT INFORMATION
  Report Type: Report from Study
  Country: JP (occurrence: JP)
  Receive Date: 20140507
  Receipt Date: 20140516
  Transmission Date: 20141212
  Serious: Yes (Life-Threatening, Hospitalization, Other)
  Sender: FDA-Public Use
  Company Number: JP-ABBVIE-05P-087-0316092-00

PATIENT
  Age: 39 Year
  Sex: Male

DRUGS (21)
  1. NORVIR SOFT GELATIN CAPSULES [Suspect]
     Indication: HIV INFECTION
     Route: 048
     Dates: start: 20040728, end: 20050424
  2. NORVIR SOFT GELATIN CAPSULES [Suspect]
     Route: 048
     Dates: start: 20080714, end: 20110519
  3. NORVIR SOFT GELATIN CAPSULES [Suspect]
     Route: 048
     Dates: start: 20110520, end: 20130326
  4. STOCRIN [Suspect]
     Indication: HIV INFECTION
     Route: 048
     Dates: start: 20050425, end: 20080713
  5. TRUVADA [Suspect]
     Indication: HIV INFECTION
     Route: 048
     Dates: start: 20050425, end: 20050523
  6. TRUVADA [Suspect]
     Dates: start: 20050524
  7. EPIVIR [Suspect]
     Indication: HIV INFECTION
     Route: 048
     Dates: start: 19971229, end: 20050424
  8. EPIVIR [Suspect]
     Route: 048
     Dates: start: 20050425, end: 20050523
  9. ZERIT [Suspect]
     Indication: HIV INFECTION
     Route: 048
     Dates: start: 19981221, end: 20050424
  10. REYATAZ [Suspect]
     Indication: HIV INFECTION
     Route: 048
     Dates: start: 20040130, end: 20040727
  11. REYATAZ [Suspect]
     Route: 048
     Dates: start: 20040728, end: 20050424
  12. VIREAD [Suspect]
     Indication: HIV INFECTION
     Dates: start: 20050425, end: 20050523
  13. CONFACT F [Concomitant]
     Indication: HAEMARTHROSIS
     Dosage: 1000 TO 3000 UNITS/MONTH
     Route: 042
     Dates: start: 20050401, end: 20050411
  14. EMTRICITABINE W/TENOFOVIR [Concomitant]
     Indication: HIV INFECTION
     Route: 048
     Dates: start: 20050524, end: 20130108
  15. KOGENATE FS [Concomitant]
     Indication: HAEMOPHILIA
     Dosage: 1000 TO 3000 TIMES WEEKLY, 1-3 TIMES PER WEEK
     Dates: start: 20050412
  16. AMMONIUM GLYCYRRHIZINATE [Concomitant]
     Indication: PRODUCT USED FOR UNKNOWN INDICATION
     Dates: start: 20050401, end: 20050615
  17. AMMONIUM GLYCYRRHIZINATE [Concomitant]
     Dates: start: 20070418
  18. CYSTEINE [Concomitant]
     Indication: PRODUCT USED FOR UNKNOWN INDICATION
     Dates: start: 20070418
  19. GLYCYRRHISINIC ACID [Concomitant]
     Indication: PRODUCT USED FOR UNKNOWN INDICATION
     Dates: start: 20110418
  20. GLYCINE [Concomitant]
     Indication: PRODUCT USED FOR UNKNOWN INDICATION
     Dates: start: 20070418
  21. NEO-MINOPHAGEN C [Concomitant]
     Indication: HEPATITIS C
     Route: 042
     Dates: start: 20040922, end: 20050615

REACTIONS (18)
  - Hepatitis C [Not Recovered/Not Resolved]
  - Oesophageal varices haemorrhage [Unknown]
  - Haematochezia [Unknown]
  - Nausea [Unknown]
  - Gastroenteritis [Recovered/Resolved]
  - Gastritis [Recovered/Resolved]
  - Intestinal mucosal hypertrophy [Recovered/Resolved]
  - Ascites [Recovered/Resolved]
  - Arthritis bacterial [Recovered/Resolved]
  - Anastomotic haemorrhage [Unknown]
  - Erosive oesophagitis [Not Recovered/Not Resolved]
  - Erosive duodenitis [Not Recovered/Not Resolved]
  - Hepatosplenomegaly [Unknown]
  - Hepatic function abnormal [Not Recovered/Not Resolved]
  - Lipoatrophy [Not Recovered/Not Resolved]
  - Staphylococcal infection [Unknown]
  - Haemoglobin decreased [Unknown]
  - Liver function test abnormal [Unknown]
